FAERS Safety Report 9238125 (Version 1)
Quarter: 2013Q1

REPORT INFORMATION
  Report Type: Spontaneous
  Country: US (occurrence: None)
  Receive Date: 20121107
  Receipt Date: 20121107
  Transmission Date: 20140127
  Serious: No
  Sender: FDA-Public Use
  Company Number: 2012HGS-003790

PATIENT
  Age: 47 Year
  Sex: Female
  Weight: 118.84 kg

DRUGS (5)
  1. BENLYSTA [Suspect]
     Indication: SYSTEMIC LUPUS ERYTHEMATOSUS
     Dosage: 1 IN 28 D, INTRAVENOUS DRIP
     Route: 041
  2. CYMBALTA(DULOXETINE HYDROCHLORIDE) (DULOXETINE HYDROCHLORIDE) [Concomitant]
  3. PLAQUENIL(HYDROXYCHLOROQUINE SULFATE) (HYDROXYCHLOROQUINE SULFATE) [Concomitant]
  4. AMBIEN(ZOLPIDEM TARTRATE) (ZOLPIDEM TARTRATE) [Concomitant]
  5. FLEXERIL(CYCLOBENZAPRINE HYDROCHLORIDE) (CYCLOBENZAPRINE HYDROCHLORIDE) [Concomitant]

REACTIONS (2)
  - Productive cough [None]
  - Nausea [None]
